FAERS Safety Report 10256595 (Version 1)
Quarter: 2014Q2

REPORT INFORMATION
  Report Type: Spontaneous
  Country: FR (occurrence: FR)
  Receive Date: 20140624
  Receipt Date: 20140624
  Transmission Date: 20141212
  Serious: Yes (Hospitalization, Other)
  Sender: FDA-Public Use
  Company Number: FR-PFIZER INC-2014169519

PATIENT
  Age: 60 Year
  Sex: Female

DRUGS (11)
  1. AMLOR [Suspect]
     Dosage: 50 TABLETS
     Route: 048
     Dates: start: 20140523, end: 20140523
  2. AMLOR [Suspect]
     Dosage: UNK
  3. PROZAC [Suspect]
     Dosage: 56 TABLETS
     Route: 048
     Dates: start: 20140523, end: 20140523
  4. PROZAC [Suspect]
     Dosage: UNK
  5. THERALENE [Suspect]
     Dosage: 100 TABLETS
     Route: 048
     Dates: start: 20140523, end: 20140523
  6. THERALENE [Suspect]
     Dosage: UNK
  7. FOSINOPRIL [Suspect]
     Dosage: 20 TABLETS
     Route: 048
     Dates: start: 20140523, end: 20140523
  8. FOSINOPRIL [Suspect]
     Dosage: UNK
  9. LEXOMIL [Concomitant]
     Dosage: UNK
  10. VOGALENE [Concomitant]
     Dosage: UNK
  11. CETIRIZINE [Concomitant]
     Dosage: UNK

REACTIONS (6)
  - Overdose [Unknown]
  - Hypotension [Recovered/Resolved]
  - Electrocardiogram QT prolonged [Recovered/Resolved]
  - Vasoplegia syndrome [Recovered/Resolved]
  - Rhabdomyolysis [Unknown]
  - Acute prerenal failure [Recovered/Resolved]
